FAERS Safety Report 26071203 (Version 2)
Quarter: 2025Q4

REPORT INFORMATION
  Report Type: Spontaneous
  Country: CN (occurrence: CN)
  Receive Date: 20251120
  Receipt Date: 20251126
  Transmission Date: 20260118
  Serious: Yes (Other)
  Sender: PFIZER
  Company Number: CN-MLMSERVICE-20251107-PI701595-00165-1

PATIENT
  Age: 92 Month
  Sex: Female

DRUGS (4)
  1. PACLITAXEL [Suspect]
     Active Substance: PACLITAXEL
     Indication: Mesoblastic nephroma
     Dosage: UNK, EVERY 3 WEEKS; EIGHT CYCLES
     Route: 042
     Dates: end: 2025
  2. GEMCITABINE [Suspect]
     Active Substance: GEMCITABINE
     Indication: Mesoblastic nephroma
     Dosage: UNK, EVERY 3 WEEKS; EIGHT CYCLES
     Route: 042
     Dates: end: 2025
  3. AFATINIB [Suspect]
     Active Substance: AFATINIB
     Indication: Mesoblastic nephroma
     Dosage: DAILY
     Route: 048
  4. TORIPALIMAB [Suspect]
     Active Substance: TORIPALIMAB
     Indication: Mesoblastic nephroma
     Dosage: UNK, EVERY 3 WEEKS; EIGHT CYCLES
     Dates: end: 2025

REACTIONS (5)
  - Neutropenia [Recovered/Resolved]
  - Fatigue [Recovered/Resolved]
  - Rash [Recovered/Resolved]
  - Off label use [Unknown]
  - Off label use [Unknown]
